FAERS Safety Report 8221638-X (Version None)
Quarter: 2012Q1

REPORT INFORMATION
  Report Type: 
  Country: None (occurrence: None)
  Receive Date: 20120320
  Receipt Date: 20120315
  Transmission Date: 20120608
  Serious: Yes (Other)
  Sender: FDA-Public Use
  Company Number: US-PFIZER INC-2012063126

PATIENT

DRUGS (14)
  1. PROTONIX [Suspect]
     Dosage: 40 MG, 1X/DAY
     Route: 048
  2. ATIVAN [Concomitant]
     Dosage: 0.5 MG, (1 A DAY OR AS NEEDED)
  3. ACTOS [Concomitant]
     Dosage: 45 MG, 1X/DAY
  4. LIPITOR [Suspect]
     Dosage: 80 MG, 1X/DAY
     Route: 048
  5. GLIMEPIRIDE [Concomitant]
     Dosage: 40 MG, 1X/DAY
  6. PROMETHAZINE HYDROCHLORIDE [Concomitant]
     Indication: NAUSEA
     Dosage: 25 MG, AS NEEDED (EVERY 6 HRS)
  7. JANUVIA [Concomitant]
     Dosage: 100 MG, 1X/DAY
  8. LEVOXYL [Concomitant]
     Dosage: 0.05 MG, 1X/DAY
  9. NITROGLYCERIN [Concomitant]
     Dosage: 0.4 MG, AS NEEDED (1 EVERY 5 MIN AS NEEDED)
     Route: 060
  10. CALCIUM CARBONATE/COLECALCIFEROL [Concomitant]
     Dosage: 600 MG, 2X/DAY
  11. PREMARIN [Suspect]
     Dosage: UNK, 2X/WEEK
  12. ATORVASTATIN [Concomitant]
     Dosage: 80 MG, 1X/DAY
  13. PANTOPRAZOLE [Concomitant]
     Dosage: 40 MG, 1X/DAY
  14. NASONEX [Concomitant]
     Dosage: 50 MCG/1ACT, 2 SPRAYS IN EACH NOSTRIL, DAILY

REACTIONS (5)
  - NAUSEA [None]
  - DIABETES MELLITUS [None]
  - CARDIAC DISORDER [None]
  - ARTHRITIS [None]
  - HYPERTENSION [None]
